FAERS Safety Report 7110224-0 (Version None)
Quarter: 2010Q4

REPORT INFORMATION
  Report Type: 
  Country: None (occurrence: None)
  Receive Date: 20101112
  Receipt Date: 20101027
  Transmission Date: 20110411
  Serious: Yes (Hospitalization)
  Sender: FDA-Public Use
  Company Number: 1-18148069

PATIENT
  Age: 71 Year
  Sex: Female
  Weight: 124.2856 kg

DRUGS (9)
  1. QUININE SULFATE [Suspect]
     Indication: MUSCLE SPASMS
     Dosage: AS NEEDED, ORAL
     Route: 048
     Dates: start: 20020718
  2. QUININE SULFATE [Suspect]
     Indication: MUSCLE SPASMS
     Dosage: AS NEEDED, ORAL
     Route: 048
     Dates: start: 20020701
  3. ATENOLOL [Concomitant]
  4. CLINDAMYCIN [Concomitant]
  5. AMBIEN [Concomitant]
  6. ERY TAB (ERYTHROMYCIN) AND ERYTHROMYCI [Concomitant]
  7. RESTORIL [Concomitant]
  8. VICODIN (ACETAMINOPHEN AND HYDROCODONE) [Concomitant]
  9. ALLOPURINOL [Concomitant]

REACTIONS (21)
  - ANGINA PECTORIS [None]
  - ARRHYTHMIA [None]
  - ARTERIAL OCCLUSIVE DISEASE [None]
  - ARTERIOSCLEROSIS [None]
  - ATRIAL FIBRILLATION [None]
  - ATRIOVENTRICULAR BLOCK [None]
  - CARDIAC VALVE DISEASE [None]
  - CHEST PAIN [None]
  - CHRONIC OBSTRUCTIVE PULMONARY DISEASE [None]
  - COAGULOPATHY [None]
  - CORONARY ARTERY DISEASE [None]
  - DRUG HYPERSENSITIVITY [None]
  - GASTROINTESTINAL DISORDER [None]
  - HAEMORRHAGE [None]
  - HAEMORRHAGIC DISORDER [None]
  - MULTIPLE INJURIES [None]
  - MUSCLE SPASMS [None]
  - MUSCLE STRAIN [None]
  - THROMBOTIC THROMBOCYTOPENIC PURPURA [None]
  - TUBERCULIN TEST POSITIVE [None]
  - VERTIGO [None]
